FAERS Safety Report 7432451-5 (Version None)
Quarter: 2011Q2

REPORT INFORMATION
  Report Type: 
  Country: None (occurrence: None)
  Receive Date: 20110422
  Receipt Date: 20110420
  Transmission Date: 20111010
  Serious: Yes (Hospitalization)
  Sender: FDA-Public Use
  Company Number: JP-SANOFI-AVENTIS-2011SA018929

PATIENT
  Age: 81 Year
  Sex: Female
  Weight: 50 kg

DRUGS (13)
  1. LANTUS [Suspect]
     Indication: DIABETES MELLITUS
     Dosage: MORNING DOSE:8 UNIT(S)
     Route: 058
     Dates: start: 20110202, end: 20110301
  2. SITAGLIPTIN PHOSPHATE [Suspect]
     Indication: DIABETES MELLITUS
     Dosage: MORNING AND EVENING
     Route: 048
     Dates: start: 20101109, end: 20110327
  3. HACHIMIJIO-GAN [Concomitant]
     Dates: start: 20110204, end: 20110326
  4. LANTUS [Suspect]
     Dosage: MORNING DOSE:12 UNIT(S)
     Route: 058
     Dates: start: 20110326, end: 20110328
  5. HERBAL PREPARATION [Concomitant]
     Dates: start: 20110224, end: 20110326
  6. HACHIMIJIO-GAN [Concomitant]
     Dates: start: 20110204, end: 20110326
  7. HERBAL EXTRACTS [Concomitant]
  8. AMARYL [Suspect]
     Indication: DIABETES MELLITUS
     Dosage: MORNING AND EVENING
     Route: 048
     Dates: start: 20101011, end: 20110327
  9. LANTUS [Suspect]
     Dosage: MORNING DOSE:10 UNIT(S)
     Route: 058
     Dates: start: 20110301, end: 20110325
  10. SOLOSTAR [Suspect]
     Dates: start: 20110202, end: 20110328
  11. HERBAL EXTRACTS [Concomitant]
     Dates: start: 20110204, end: 20110326
  12. HERBAL EXTRACTS [Concomitant]
     Dates: start: 20110204, end: 20110326
  13. HERBAL PREPARATION [Concomitant]
     Dates: start: 20110224, end: 20110326

REACTIONS (5)
  - RESTLESSNESS [None]
  - RESPIRATORY FAILURE [None]
  - CARDIAC FAILURE [None]
  - HYPOGLYCAEMIA [None]
  - COLD SWEAT [None]
